FAERS Safety Report 8268923-3 (Version None)
Quarter: 2012Q1

REPORT INFORMATION
  Report Type: 
  Country: None (occurrence: None)
  Receive Date: 20120327
  Receipt Date: 20090609
  Transmission Date: 20120608
  Serious: Yes (Other)
  Sender: FDA-Public Use
  Company Number: PHEH2009US04888

PATIENT
  Age: 36 Year
  Sex: Female

DRUGS (1)
  1. GLEEVEC [Suspect]
     Indication: CHRONIC MYELOID LEUKAEMIA
     Dosage: UNK, ORAL
     Route: 048
     Dates: start: 20041101, end: 20090401

REACTIONS (6)
  - HEADACHE [None]
  - NAUSEA [None]
  - ARTHRALGIA [None]
  - DRUG INEFFECTIVE [None]
  - NEOPLASM MALIGNANT [None]
  - FLUID RETENTION [None]
